FAERS Safety Report 8066964-2 (Version None)
Quarter: 2012Q1

REPORT INFORMATION
  Report Type: 
  Country: None (occurrence: None)
  Receive Date: 20120124
  Receipt Date: 20120119
  Transmission Date: 20120608
  Serious: Yes (Hospitalization, Disabling, Other)
  Sender: FDA-Public Use
  Company Number: US-MERCK-1107USA03695

PATIENT
  Age: 57 Year
  Sex: Female
  Weight: 66 kg

DRUGS (12)
  1. POTASSIUM (UNSPECIFIED) [Concomitant]
     Route: 065
  2. FOSAMAX [Suspect]
     Indication: OSTEOPENIA
     Route: 048
     Dates: start: 20010412, end: 20070101
  3. VITAMINS (UNSPECIFIED) [Concomitant]
     Route: 065
  4. FOSAMAX [Suspect]
     Route: 048
     Dates: start: 20080312
  5. LEVOTHYROXINE SODIUM [Concomitant]
     Route: 065
     Dates: start: 19900101
  6. LEVOTHROID [Concomitant]
     Route: 065
  7. CALCIUM (UNSPECIFIED) [Concomitant]
     Route: 065
  8. BLACK COHOSH [Concomitant]
     Route: 065
  9. BONIVA [Suspect]
     Indication: OSTEOPOROSIS
     Route: 048
     Dates: start: 20051129
  10. FOSAMAX [Suspect]
     Route: 048
     Dates: start: 20080312
  11. BONIVA [Suspect]
     Indication: OSTEOPENIA
     Route: 048
     Dates: start: 20051129
  12. FOSAMAX [Suspect]
     Indication: OSTEOPOROSIS
     Route: 048
     Dates: start: 20010412, end: 20070101

REACTIONS (53)
  - HEAT STROKE [None]
  - IMPAIRED HEALING [None]
  - HYPOTENSION [None]
  - GASTRIC ULCER [None]
  - CHEST PAIN [None]
  - HYPOACUSIS [None]
  - HAEMORRHOIDS [None]
  - GINGIVAL DISORDER [None]
  - MYCOBACTERIUM ABSCESSUS INFECTION [None]
  - TOOTH DISORDER [None]
  - HYPERTENSION [None]
  - DIARRHOEA [None]
  - JAW DISORDER [None]
  - VISUAL IMPAIRMENT [None]
  - ABSCESS [None]
  - DYSPNOEA [None]
  - HEADACHE [None]
  - ULCER [None]
  - TOOTH LOSS [None]
  - POOR QUALITY SLEEP [None]
  - POOR DENTAL CONDITION [None]
  - PEPTIC ULCER [None]
  - MALAISE [None]
  - FATIGUE [None]
  - OSTEONECROSIS OF JAW [None]
  - PERNICIOUS ANAEMIA [None]
  - OSTEOARTHRITIS [None]
  - URINARY TRACT INFECTION [None]
  - RESTLESS LEGS SYNDROME [None]
  - LYMPHADENOPATHY [None]
  - DEPRESSION [None]
  - DENTAL CARIES [None]
  - HYPERGLYCAEMIA [None]
  - ORAL DISORDER [None]
  - PAIN [None]
  - EYE DISORDER [None]
  - JAW FRACTURE [None]
  - SYNCOPE [None]
  - PANCREATITIS [None]
  - COUGH [None]
  - NAUSEA [None]
  - VISUAL ACUITY REDUCED [None]
  - PERIODONTITIS [None]
  - INTENTION TREMOR [None]
  - FISTULA DISCHARGE [None]
  - BREAST MASS [None]
  - VITAMIN D DEFICIENCY [None]
  - SOMNOLENCE [None]
  - OSTEOMYELITIS [None]
  - GINGIVAL INFECTION [None]
  - GASTROINTESTINAL HAEMORRHAGE [None]
  - ABNORMAL LOSS OF WEIGHT [None]
  - INCISIONAL HERNIA [None]
